FAERS Safety Report 13151791 (Version 1)
Quarter: 2017Q1

REPORT INFORMATION
  Report Type: Report from Study
  Country: US (occurrence: US)
  Receive Date: 20170125
  Receipt Date: 20170125
  Transmission Date: 20170428
  Serious: Yes (Hospitalization)
  Sender: FDA-Public Use
  Company Number: US-ACTELION-A-NJ2016-141293

PATIENT
  Age: 61 Year
  Sex: Female

DRUGS (7)
  1. OPSUMIT [Suspect]
     Active Substance: MACITENTAN
     Indication: PULMONARY ARTERIAL HYPERTENSION
     Dosage: 10 MG, QD
     Route: 048
     Dates: start: 20140312
  2. ZOLOFT [Concomitant]
     Active Substance: SERTRALINE HYDROCHLORIDE
     Dosage: 50 MG, QD
  3. SPIRIVA [Concomitant]
     Active Substance: TIOTROPIUM BROMIDE MONOHYDRATE
     Dosage: 18 MCG, QD
  4. TREPROSTINIL [Concomitant]
     Active Substance: TREPROSTINIL
     Dosage: 11.625 MG, BID
  5. ZYRTEC [Concomitant]
     Active Substance: CETIRIZINE HYDROCHLORIDE
     Dosage: 10 MG, QD
  6. SYMBICORT [Concomitant]
     Active Substance: BUDESONIDE\FORMOTEROL FUMARATE DIHYDRATE
     Dosage: 80-4.5 MCG/ACT, BID
  7. COUMADIN [Concomitant]
     Active Substance: WARFARIN SODIUM
     Dosage: 2 MG, QD

REACTIONS (5)
  - Malaise [Not Recovered/Not Resolved]
  - Bronchitis [Recovered/Resolved]
  - Productive cough [Not Recovered/Not Resolved]
  - Asthenia [Recovered/Resolved]
  - Decreased appetite [Not Recovered/Not Resolved]

NARRATIVE: CASE EVENT DATE: 20160805
